FAERS Safety Report 22336429 (Version 2)
Quarter: 2023Q2

REPORT INFORMATION
  Report Type: Report from Study
  Country: FI (occurrence: FI)
  Receive Date: 20230518
  Receipt Date: 20230607
  Transmission Date: 20230722
  Serious: Yes (Hospitalization, Other)
  Sender: FDA-Public Use
  Company Number: FI-ABBVIE-4767481

PATIENT
  Age: 79 Year
  Sex: Male

DRUGS (3)
  1. CARBIDOPA\LEVODOPA [Suspect]
     Active Substance: CARBIDOPA\LEVODOPA
     Indication: Parkinson^s disease
     Dosage: MD: 9.5 ML; CD: 2.1 ML/H; ED: 1 ML; 16H TREATMENT
     Route: 050
     Dates: start: 20230515, end: 20230515
  2. CARBIDOPA\LEVODOPA [Suspect]
     Active Substance: CARBIDOPA\LEVODOPA
     Dosage: MD: 9.5 ML; CD 2.3 ML/H; ED: 1 ML; 16H TREATMENT
     Route: 050
  3. CARBIDOPA\LEVODOPA [Suspect]
     Active Substance: CARBIDOPA\LEVODOPA
     Dosage: MD: 9.5 ML; CD 2.5 ML/H; ED: 1 ML; 16H TREATMENT
     Route: 050
     Dates: start: 2014

REACTIONS (7)
  - Cognitive disorder [Not Recovered/Not Resolved]
  - Hospitalisation [Recovered/Resolved]
  - Hypophagia [Unknown]
  - Dyskinesia [Not Recovered/Not Resolved]
  - Device physical property issue [Recovered/Resolved]
  - Mobility decreased [Unknown]
  - Device issue [Unknown]

NARRATIVE: CASE EVENT DATE: 20230501
